FAERS Safety Report 6664755-8 (Version None)
Quarter: 2010Q2

REPORT INFORMATION
  Report Type: 
  Country: None (occurrence: None)
  Receive Date: 20100401
  Receipt Date: 20100323
  Transmission Date: 20101027
  Serious: Yes (Other)
  Sender: FDA-Public Use
  Company Number: US-AMGEN-TCS395406

PATIENT
  Sex: Male

DRUGS (3)
  1. ENBREL [Suspect]
     Indication: PSORIASIS
     Dates: start: 20050119, end: 20100203
  2. CRESTOR [Concomitant]
  3. ENTOCORT EC [Concomitant]

REACTIONS (1)
  - CROHN'S DISEASE [None]
